FAERS Safety Report 24958319 (Version 7)
Quarter: 2025Q3

REPORT INFORMATION
  Report Type: Report from Study
  Country: CA (occurrence: CA)
  Receive Date: 20250212
  Receipt Date: 20250925
  Transmission Date: 20251020
  Serious: Yes (Hospitalization)
  Sender: CSL BEHRING
  Company Number: CA-BEH-2024178084

PATIENT
  Age: 61 Year
  Sex: Female
  Weight: 84 kg

DRUGS (21)
  1. HIZENTRA [Suspect]
     Active Substance: HUMAN IMMUNOGLOBULIN G
     Indication: Primary immunodeficiency syndrome
     Dosage: 8 G, QW
     Route: 058
     Dates: start: 20240803
  2. HIZENTRA [Suspect]
     Active Substance: HUMAN IMMUNOGLOBULIN G
     Dosage: 8 G, QW
     Route: 042
     Dates: start: 20240803
  3. HIZENTRA [Suspect]
     Active Substance: HUMAN IMMUNOGLOBULIN G
     Dosage: UNK, QW
     Route: 065
  4. HIZENTRA [Suspect]
     Active Substance: HUMAN IMMUNOGLOBULIN G
     Dosage: 8 G, QW
     Route: 065
     Dates: start: 20230803
  5. HIZENTRA [Suspect]
     Active Substance: HUMAN IMMUNOGLOBULIN G
     Dosage: 8 G, QW
     Route: 058
     Dates: start: 20230803
  6. HIZENTRA [Suspect]
     Active Substance: HUMAN IMMUNOGLOBULIN G
     Dosage: 8 G, QW
     Route: 058
     Dates: start: 20230803
  7. HIZENTRA [Suspect]
     Active Substance: HUMAN IMMUNOGLOBULIN G
     Dosage: 7 G, QW
     Route: 058
     Dates: start: 20230803
  8. HIZENTRA [Suspect]
     Active Substance: HUMAN IMMUNOGLOBULIN G
     Dosage: 7 G, QW
     Route: 058
     Dates: start: 20240803
  9. HIZENTRA [Suspect]
     Active Substance: HUMAN IMMUNOGLOBULIN G
     Route: 058
  10. HIZENTRA [Suspect]
     Active Substance: HUMAN IMMUNOGLOBULIN G
     Route: 058
  11. HIZENTRA [Suspect]
     Active Substance: HUMAN IMMUNOGLOBULIN G
     Route: 058
  12. LORATADINE [Concomitant]
     Active Substance: LORATADINE
     Indication: Product used for unknown indication
     Route: 065
  13. RABEPRAZOLE [Concomitant]
     Active Substance: RABEPRAZOLE
     Indication: Product used for unknown indication
     Route: 065
  14. ATORVASTATIN [Concomitant]
     Active Substance: ATORVASTATIN
     Indication: Product used for unknown indication
     Route: 065
  15. AMITRIPTYLINE [Concomitant]
     Active Substance: AMITRIPTYLINE
  16. RAMIPRIL [Concomitant]
     Active Substance: RAMIPRIL
  17. MYCOPHENOLATE MOFETIL [Concomitant]
     Active Substance: MYCOPHENOLATE MOFETIL
  18. MYCOPHENOLIC ACID [Concomitant]
     Active Substance: MYCOPHENOLIC ACID
     Route: 065
  19. MYCOPHENOLIC ACID [Concomitant]
     Active Substance: MYCOPHENOLIC ACID
  20. VITAMINS [Concomitant]
     Active Substance: VITAMINS
  21. ATORVASTATIN CALCIUM [Concomitant]
     Active Substance: ATORVASTATIN CALCIUM
     Route: 065

REACTIONS (56)
  - Loss of consciousness [Unknown]
  - Blood electrolytes decreased [Unknown]
  - Blood iron decreased [Unknown]
  - Asthenia [Unknown]
  - Injection site swelling [Unknown]
  - Abdominal pain upper [Unknown]
  - Headache [Unknown]
  - Pyrexia [Unknown]
  - Pyrexia [Unknown]
  - Headache [Unknown]
  - Headache [Not Recovered/Not Resolved]
  - Rash [Recovered/Resolved]
  - Rash [Unknown]
  - Headache [Unknown]
  - Infusion site rash [Unknown]
  - Infusion site induration [Unknown]
  - Pyrexia [Unknown]
  - Pain [Unknown]
  - Infusion site rash [Unknown]
  - Infusion site erythema [Unknown]
  - Rash [Unknown]
  - Infusion site erythema [Unknown]
  - Infusion site rash [Unknown]
  - Infusion site rash [Unknown]
  - Infusion site erythema [Unknown]
  - Urticaria [Recovered/Resolved]
  - Rash erythematous [Unknown]
  - Infusion site swelling [Unknown]
  - Tremor [Unknown]
  - Infusion site haemorrhage [Unknown]
  - Infusion site pain [Unknown]
  - Rash [Not Recovered/Not Resolved]
  - Rash [Unknown]
  - Pain [Unknown]
  - Pyrexia [Unknown]
  - Infusion site swelling [Unknown]
  - Rash erythematous [Unknown]
  - Rash pruritic [Unknown]
  - Infusion site pain [Unknown]
  - Infusion site discharge [Unknown]
  - Infusion site urticaria [Unknown]
  - Nonspecific reaction [Unknown]
  - Off label use [Unknown]
  - Infusion site swelling [Unknown]
  - Fatigue [Unknown]
  - Oropharyngeal pain [Recovered/Resolved]
  - Pharyngitis [Unknown]
  - Sinusitis [Unknown]
  - Cystitis [Unknown]
  - Rash [Not Recovered/Not Resolved]
  - Headache [Not Recovered/Not Resolved]
  - Rash [Recovered/Resolved]
  - Infusion site swelling [Unknown]
  - Headache [Unknown]
  - Abdominal pain upper [Unknown]
  - Pyrexia [Unknown]

NARRATIVE: CASE EVENT DATE: 20240812
